FAERS Safety Report 11127920 (Version 1)
Quarter: 2015Q2

REPORT INFORMATION
  Report Type: Spontaneous
  Country: IT (occurrence: IT)
  Receive Date: 20150521
  Receipt Date: 20150521
  Transmission Date: 20150821
  Serious: Yes (Other)
  Sender: FDA-Public Use
  Company Number: IT-MYLANLABS-2015M1016595

PATIENT

DRUGS (5)
  1. IFOSFAMIDE. [Concomitant]
     Active Substance: IFOSFAMIDE
     Indication: CHONDROSARCOMA
     Dosage: HIGH-DOSE
     Route: 065
     Dates: start: 201207
  2. GEMCITABINE [Suspect]
     Active Substance: GEMCITABINE\GEMCITABINE HYDROCHLORIDE
     Indication: OFF LABEL USE
  3. GEMCITABINE [Suspect]
     Active Substance: GEMCITABINE\GEMCITABINE HYDROCHLORIDE
     Indication: CHONDROSARCOMA
     Dosage: 1000 MG/M2 OVER 30 MINS, ON DAYS 1, 8, AND 15 EVERY 28 DAYS
     Route: 041
     Dates: start: 201212
  4. CISPLATIN. [Concomitant]
     Active Substance: CISPLATIN
     Indication: CHONDROSARCOMA
     Route: 065
  5. ETOPOSIDE. [Concomitant]
     Active Substance: ETOPOSIDE
     Indication: CHONDROSARCOMA
     Route: 065

REACTIONS (3)
  - Disease progression [Not Recovered/Not Resolved]
  - Chondrosarcoma [Not Recovered/Not Resolved]
  - Neutropenia [Unknown]
